FAERS Safety Report 9952266 (Version 2)
Quarter: 2014Q2

REPORT INFORMATION
  Report Type: Spontaneous
  Country: DE (occurrence: DE)
  Receive Date: 20140304
  Receipt Date: 20140605
  Transmission Date: 20141212
  Serious: Yes (Hospitalization)
  Sender: FDA-Public Use
  Company Number: DE-JNJFOC-20140213081

PATIENT
  Age: 45 Year
  Sex: Male
  Weight: 122 kg

DRUGS (2)
  1. STELARA [Suspect]
     Indication: PSORIASIS
     Route: 058
     Dates: start: 20130827, end: 20131217
  2. VIANI [Concomitant]
     Dosage: VIANI 50/250 FOR INHALATION 1-0-1
     Route: 065

REACTIONS (6)
  - Pleurisy [Unknown]
  - Pericardial effusion [Recovering/Resolving]
  - Influenza [Recovering/Resolving]
  - Fluid retention [Recovering/Resolving]
  - Pericarditis [Recovering/Resolving]
  - Goitre [Unknown]
